FAERS Safety Report 8283325-1 (Version None)
Quarter: 2012Q2

REPORT INFORMATION
  Report Type: 
  Country: None (occurrence: None)
  Receive Date: 20120413
  Receipt Date: 20120411
  Transmission Date: 20120825
  Serious: Yes (Other)
  Sender: FDA-Public Use
  Company Number: US-BAYER-2012-013145

PATIENT
  Age: 45 Year
  Sex: Female
  Weight: 58.957 kg

DRUGS (3)
  1. AVELOX [Suspect]
     Indication: SINUSITIS
  2. ACETAMINOPHEN [Suspect]
     Indication: HEADACHE
     Dosage: TID PRN
  3. PREDNISONE TAB [Concomitant]

REACTIONS (6)
  - HEPATOTOXICITY [None]
  - HEPATIC ENZYME INCREASED [None]
  - MALAISE [None]
  - HEADACHE [None]
  - CHROMATURIA [None]
  - PYREXIA [None]
